FAERS Safety Report 20323686 (Version 1)
Quarter: 2022Q1

REPORT INFORMATION
  Report Type: Spontaneous
  Country: US (occurrence: None)
  Receive Date: 20220111
  Receipt Date: 20220111
  Transmission Date: 20220423
  Serious: Yes (Death, Hospitalization, Other)
  Sender: FDA-Public Use
  Company Number: None

PATIENT
  Age: 75 Year
  Sex: Male
  Weight: 81.65 kg

DRUGS (14)
  1. COSMETICS [Suspect]
     Active Substance: COSMETICS
     Indication: Pruritus
     Dosage: FREQUENCY : TWICE A DAY;?OTHER ROUTE : SPRAYED ON FEET AND IN SHOES ;?
     Route: 050
     Dates: start: 20160915
  2. COSMETICS [Suspect]
     Active Substance: COSMETICS
     Indication: Skin odour abnormal
  3. BLISTEX ODOR-EATERS POWDER [Suspect]
     Active Substance: TOLNAFTATE
  4. FAMOTIDINE [Concomitant]
     Active Substance: FAMOTIDINE
  5. FLOMAX [Concomitant]
     Active Substance: TAMSULOSIN HYDROCHLORIDE
  6. CRESTOR [Concomitant]
     Active Substance: ROSUVASTATIN CALCIUM
  7. RANEXA [Concomitant]
     Active Substance: RANOLAZINE
  8. NITROGLYCERIN [Concomitant]
     Active Substance: NITROGLYCERIN
  9. METOPROLOL [Concomitant]
     Active Substance: METOPROLOL
  10. VIDAZA [Concomitant]
     Active Substance: AZACITIDINE
  11. TYLENOL [Concomitant]
     Active Substance: ACETAMINOPHEN
  12. VITAMINS [Concomitant]
     Active Substance: VITAMINS
  13. ASPIRIN [Concomitant]
     Active Substance: ASPIRIN
  14. PROBIOTICS NOS [Concomitant]
     Active Substance: PROBIOTICS NOS

REACTIONS (4)
  - Myelodysplastic syndrome [None]
  - Treatment failure [None]
  - Recalled product administered [None]
  - Blood product transfusion dependent [None]

NARRATIVE: CASE EVENT DATE: 20200929
